FAERS Safety Report 5447173-X (Version None)
Quarter: 2007Q3

REPORT INFORMATION
  Report Type: 
  Country: None (occurrence: None)
  Receive Date: 20070910
  Receipt Date: 20070903
  Transmission Date: 20080115
  Serious: Yes (Hospitalization, Other)
  Sender: FDA-Public Use
  Company Number: PHRM2007FR02128

PATIENT
  Age: 78 Year
  Sex: Female

DRUGS (7)
  1. TRILEPTAL [Suspect]
     Dosage: 600 MG, TID
     Route: 048
     Dates: end: 20070412
  2. ELAVIL [Suspect]
     Dosage: 25 MG, BID
     Route: 048
     Dates: start: 20070401, end: 20070712
  3. TERCIAN [Suspect]
     Dosage: 100 MG, TID
     Route: 048
     Dates: end: 20070712
  4. ACTONEL [Suspect]
     Dosage: 35 MG, QW
     Route: 048
     Dates: end: 20070712
  5. PRAVASTATIN SODIUM [Suspect]
     Dosage: 1 DF, QD
     Route: 048
     Dates: end: 20070712
  6. PROPRANOLOL HYDROCHLORIDE [Suspect]
     Dosage: 40 MG, BID
     Route: 048
     Dates: end: 20070712
  7. ATARAX /POR/ [Suspect]
     Dosage: 200 MG, TID
     Route: 048
     Dates: end: 20070712

REACTIONS (25)
  - ABDOMINAL PAIN LOWER [None]
  - ANAEMIA [None]
  - ANTIPHOSPHOLIPID ANTIBODIES POSITIVE [None]
  - ASTHENIA [None]
  - BIOPSY LIVER ABNORMAL [None]
  - BLOOD ALKALINE PHOSPHATASE INCREASED [None]
  - BLOOD BILIRUBIN INCREASED [None]
  - CHOLANGITIS [None]
  - DIABETES MELLITUS [None]
  - EMPHYSEMATOUS CYSTITIS [None]
  - GAMMA-GLUTAMYLTRANSFERASE INCREASED [None]
  - GLYCOSYLATED HAEMOGLOBIN INCREASED [None]
  - HAEMOGLOBIN DECREASED [None]
  - HEPATIC FIBROSIS [None]
  - HEPATITIS CHOLESTATIC [None]
  - HEPATOMEGALY [None]
  - JAUNDICE [None]
  - LYMPH NODES SCAN ABNORMAL [None]
  - LYMPHADENOPATHY [None]
  - MEAN CELL VOLUME ABNORMAL [None]
  - PLATELET COUNT INCREASED [None]
  - PRURITUS [None]
  - SERUM FERRITIN INCREASED [None]
  - SKIN LESION [None]
  - WEIGHT DECREASED [None]
